FAERS Safety Report 17052374 (Version 1)
Quarter: 2019Q4

REPORT INFORMATION
  Report Type: Spontaneous
  Country: JP (occurrence: JP)
  Receive Date: 20191120
  Receipt Date: 20191120
  Transmission Date: 20200122
  Serious: Yes (Other)
  Sender: FDA-Public Use
  Company Number: JP-PFIZER INC-2019492988

PATIENT
  Sex: Female

DRUGS (2)
  1. RHEUMATREX [Suspect]
     Active Substance: METHOTREXATE SODIUM
  2. FOLIAMIN [Suspect]
     Active Substance: FOLIC ACID
     Dosage: UNK
     Dates: end: 20191112

REACTIONS (1)
  - Uterine cancer [Unknown]
